FAERS Safety Report 8808360 (Version 1)
Quarter: 2012Q4

REPORT INFORMATION
  Report Type: Spontaneous
  Country: US (occurrence: None)
  Receive Date: 20120920
  Receipt Date: 20120920
  Transmission Date: 20130627
  Serious: No
  Sender: FDA-Public Use
  Company Number: None

PATIENT
  Age: 79 Year
  Sex: Male

DRUGS (1)
  1. TACROLIMUS [Suspect]
     Dates: start: 20071121, end: 20100206

REACTIONS (5)
  - Drug-induced liver injury [None]
  - Failure to thrive [None]
  - Hyperkalaemia [None]
  - Renal failure [None]
  - Drug level decreased [None]
